APPROVED DRUG PRODUCT: TRIAMTERENE AND HYDROCHLOROTHIAZIDE
Active Ingredient: HYDROCHLOROTHIAZIDE; TRIAMTERENE
Strength: 25MG;37.5MG
Dosage Form/Route: TABLET;ORAL
Application: A071251 | Product #002 | TE Code: AB
Applicant: APOTEX INC
Approved: May 5, 1998 | RLD: No | RS: No | Type: RX